FAERS Safety Report 22197231 (Version 1)
Quarter: 2023Q2

REPORT INFORMATION
  Report Type: Other
  Country: US (occurrence: US)
  Receive Date: 20230411
  Receipt Date: 20230411
  Transmission Date: 20230722
  Serious: Yes (Death)
  Sender: FDA-Public Use
  Company Number: US-ALVOGEN-2023091189

PATIENT
  Age: 32 Year
  Sex: Male

DRUGS (3)
  1. FENTANYL [Suspect]
     Active Substance: FENTANYL
     Indication: Drug abuse
     Route: 054
  2. METHAMPHETAMINE [Suspect]
     Active Substance: METHAMPHETAMINE
     Indication: Drug abuse
     Route: 054
  3. METHADONE [Suspect]
     Active Substance: METHADONE HYDROCHLORIDE
     Indication: Drug abuse
     Route: 054

REACTIONS (13)
  - Hepatic cirrhosis [Fatal]
  - Toxicity to various agents [Fatal]
  - Brain injury [Fatal]
  - Respiratory alkalosis [Fatal]
  - Brain death [Unknown]
  - Diabetes insipidus [Fatal]
  - Brain oedema [Fatal]
  - Unresponsive to stimuli [Fatal]
  - Abdominal distension [Fatal]
  - Pulseless electrical activity [Fatal]
  - Drug abuse [Fatal]
  - Lethargy [Fatal]
  - Incorrect route of product administration [Unknown]
